FAERS Safety Report 9342589 (Version 4)
Quarter: 2018Q3

REPORT INFORMATION
  Report Type: Report from Study
  Country: AR (occurrence: AR)
  Receive Date: 20130611
  Receipt Date: 20180810
  Transmission Date: 20181010
  Serious: Yes (Death, Hospitalization)
  Sender: FDA-Public Use
  Company Number: PHHY2013AR059081

PATIENT
  Age: 87 Year
  Sex: Male

DRUGS (1)
  1. DIOVAN [Suspect]
     Active Substance: VALSARTAN
     Indication: BLOOD PRESSURE INCREASED
     Dosage: 1 DF, QD (LESS THAN 14 YEARS AGO)
     Route: 048

REACTIONS (5)
  - Hemiplegia [Recovered/Resolved]
  - Prostatic disorder [Unknown]
  - Lung neoplasm malignant [Fatal]
  - Wrong technique in product usage process [Unknown]
  - Ischaemic stroke [Unknown]

NARRATIVE: CASE EVENT DATE: 20120507
